FAERS Safety Report 9435538 (Version 3)
Quarter: 2013Q3

REPORT INFORMATION
  Report Type: Spontaneous
  Country: DK (occurrence: DK)
  Receive Date: 20130801
  Receipt Date: 20130829
  Transmission Date: 20140515
  Serious: Yes (Other)
  Sender: FDA-Public Use
  Company Number: DK-ACTAVIS-2013-13473

PATIENT
  Sex: Female

DRUGS (13)
  1. GEMCITABINE (UNKNOWN) [Suspect]
     Indication: DISEASE PROGRESSION
     Dosage: UNK, UNKNOWN
     Route: 065
  2. CARBOPLATIN (UNKNOWN) [Suspect]
     Indication: BREAST CANCER
     Dosage: UNK, UNKNOWN
     Route: 065
  3. VINORELBINE (UNKNOWN) [Suspect]
     Indication: BREAST CANCER
     Dosage: UNK, UNKNOWN
     Route: 065
  4. CYCLOPHOSPHAMIDE (UNKNOWN) [Suspect]
     Indication: BREAST CANCER
     Dosage: UNK, UNKNOWN
     Route: 065
     Dates: start: 2003
  5. METHOTREXATE (UNKNOWN) [Suspect]
     Indication: BREAST CANCER
     Dosage: UNK, UNKNOWN
     Route: 065
     Dates: start: 2003
  6. FLUOROURACIL (UNKNOWN) [Suspect]
     Indication: BREAST CANCER
     Dosage: UNK, UNKNOWN
     Route: 065
     Dates: start: 2003
  7. EPIRUBICIN /00699302/ [Suspect]
     Indication: BREAST CANCER
     Dosage: UNK, UNKNOWN
     Route: 065
     Dates: start: 201201, end: 201301
  8. LAPATINIB [Suspect]
     Indication: BREAST CANCER
     Dosage: UNK, UNKNOWN
     Route: 065
     Dates: start: 20100719, end: 201201
  9. ERIBULIN [Suspect]
     Indication: BREAST CANCER
     Dosage: UNK, UNKNOWN
     Route: 065
     Dates: start: 201201, end: 201301
  10. HERCEPTIN [Suspect]
     Indication: BREAST CANCER
     Dosage: UNK, UNKNOWN
     Route: 065
     Dates: start: 200701
  11. XELODA [Suspect]
     Indication: BREAST CANCER
     Dosage: UNK, UNKNOWN
     Route: 065
     Dates: start: 200812
  12. TAXOTERE [Suspect]
     Indication: BREAST CANCER
     Dosage: UNK, UNKNOWN
     Route: 065
     Dates: start: 200701
  13. CORODIL                            /00042901/ [Concomitant]
     Indication: PRODUCT USED FOR UNKNOWN INDICATION
     Dosage: UNK, UNKNOWN
     Route: 065

REACTIONS (2)
  - Disease progression [Unknown]
  - Cardiac disorder [Unknown]
